FAERS Safety Report 5505623-4 (Version None)
Quarter: 2007Q4

REPORT INFORMATION
  Report Type: 
  Country: None (occurrence: None)
  Receive Date: 20071102
  Receipt Date: 20071022
  Transmission Date: 20080405
  Serious: Yes (Hospitalization, Other)
  Sender: FDA-Public Use
  Company Number: US-PFIZER INC-2007088612

PATIENT
  Age: 26 Year
  Sex: Male
  Weight: 163.3 kg

DRUGS (2)
  1. GEODON [Suspect]
     Indication: SCHIZOAFFECTIVE DISORDER
     Dosage: DAILY DOSE:180MG-TEXT:BID EVERY DAY TDD:180MG
     Route: 048
  2. GEODON [Suspect]
     Indication: HALLUCINATION

REACTIONS (2)
  - HALLUCINATION [None]
  - THINKING ABNORMAL [None]
